FAERS Safety Report 9415396 (Version 1)
Quarter: 2013Q3

REPORT INFORMATION
  Report Type: Spontaneous
  Country: CA (occurrence: CA)
  Receive Date: 20130723
  Receipt Date: 20130723
  Transmission Date: 20140515
  Serious: Yes (Other)
  Sender: FDA-Public Use
  Company Number: CA-TEVA-420493USA

PATIENT
  Sex: Female

DRUGS (6)
  1. BISOPROLOL [Suspect]
     Indication: BLOOD PRESSURE INCREASED
     Dosage: 5 MILLIGRAM DAILY; AT BEDTIME
     Route: 048
     Dates: start: 20130508
  2. PREMARIN [Concomitant]
     Dosage: .1429 GRAM DAILY; 0.625 MG/G
     Route: 067
  3. RETIN-A MICRO [Concomitant]
     Dosage: 0.04 % AT BEDTIME ON FACE
     Route: 061
  4. NOVO-TRIAMZIDE [Concomitant]
     Dosage: 1 TABLET DAILY; 50/25 MG IN THE MORNING
  5. APO-ATORVASTATIN [Concomitant]
     Dosage: 20 MILLIGRAM DAILY; AT BEDTIME
  6. APO-RISEDRONATE [Concomitant]
     Dosage: 5 MILLIGRAM DAILY;

REACTIONS (4)
  - Oral candidiasis [Not Recovered/Not Resolved]
  - Oral pain [Not Recovered/Not Resolved]
  - Oral discomfort [Not Recovered/Not Resolved]
  - Oropharyngeal plaque [Not Recovered/Not Resolved]
